FAERS Safety Report 9184496 (Version 3)
Quarter: 2013Q2

REPORT INFORMATION
  Report Type: Other
  Country: FR (occurrence: FR)
  Receive Date: 20130322
  Receipt Date: 20130621
  Transmission Date: 20140414
  Serious: Yes (Other)
  Sender: FDA-Public Use
  Company Number: FR-ALEXION PHARMACEUTICALS INC.-A201300488

PATIENT
  Age: 1 Year
  Sex: Female

DRUGS (4)
  1. SOLIRIS 300MG [Suspect]
     Indication: HAEMOLYTIC URAEMIC SYNDROME
     Dosage: UNK, QW
     Route: 042
     Dates: start: 20130214
  2. AMOXICILLINE [Concomitant]
     Indication: ANTIBIOTIC PROPHYLAXIS
     Dosage: UNK
     Route: 048
     Dates: start: 20130213, end: 20130227
  3. PHENOBARBITAL [Concomitant]
     Indication: CONVULSION
     Dosage: UNK
     Route: 048
     Dates: start: 20130213, end: 20130224
  4. KANEURON [Concomitant]
     Indication: CONVULSION
     Dosage: UNK
     Dates: start: 20130225, end: 20130227

REACTIONS (2)
  - Agranulocytosis [Recovering/Resolving]
  - Rash maculo-papular [Unknown]
